FAERS Safety Report 7423120-6 (Version None)
Quarter: 2011Q2

REPORT INFORMATION
  Report Type: 
  Country: None (occurrence: None)
  Receive Date: 20110419
  Receipt Date: 20110408
  Transmission Date: 20111010
  Serious: Yes (Hospitalization)
  Sender: FDA-Public Use
  Company Number: AU-SANOFI-AVENTIS-2011SA021881

PATIENT
  Age: 70 Year
  Sex: Male
  Weight: 69 kg

DRUGS (13)
  1. ORDINE [Concomitant]
     Indication: BACK PAIN
     Route: 048
     Dates: start: 20100801
  2. DOCETAXEL [Suspect]
     Route: 041
  3. DOCETAXEL [Suspect]
     Indication: PROSTATE CANCER
     Route: 041
     Dates: start: 20101122, end: 20101122
  4. PARACETAMOL [Concomitant]
     Indication: BACK PAIN
     Route: 048
     Dates: start: 20100601
  5. DOCUSATE SODIUM/SENNOSIDE A+B [Concomitant]
     Indication: CONSTIPATION
     Route: 048
     Dates: start: 20101221
  6. BLINDED THERAPY [Suspect]
     Route: 048
  7. CALCIUM WITH VITAMIN D [Concomitant]
     Route: 048
     Dates: start: 20110205
  8. METOCLOPRAMIDE [Concomitant]
     Indication: ANTIEMETIC SUPPORTIVE CARE
     Route: 042
     Dates: start: 20110210
  9. KAPANOL [Concomitant]
     Indication: BACK PAIN
     Route: 048
     Dates: start: 20100801
  10. BLINDED THERAPY [Suspect]
     Indication: PROSTATE CANCER
     Route: 048
     Dates: start: 20101122
  11. PREDNISONE [Suspect]
     Indication: PROSTATE CANCER
     Dates: start: 20101122
  12. PREDNISONE [Suspect]
  13. CLEXANE [Concomitant]
     Route: 058
     Dates: start: 20110210, end: 20110220

REACTIONS (2)
  - HYPONATRAEMIA [None]
  - BACK PAIN [None]
